FAERS Safety Report 16740916 (Version 2)
Quarter: 2019Q3

REPORT INFORMATION
  Report Type: Spontaneous
  Country: US (occurrence: US)
  Receive Date: 20190826
  Receipt Date: 20190916
  Transmission Date: 20191005
  Serious: No
  Sender: FDA-Public Use
  Company Number: US-PFIZER INC-2019364489

PATIENT
  Age: 35 Year

DRUGS (1)
  1. LYRICA [Suspect]
     Active Substance: PREGABALIN
     Dosage: UNK

REACTIONS (6)
  - Nausea [Unknown]
  - Malaise [Unknown]
  - Hypoaesthesia [Unknown]
  - Pain [Unknown]
  - Muscle spasms [Unknown]
  - Feeling abnormal [Unknown]
